FAERS Safety Report 8483270-2 (Version None)
Quarter: 2012Q2

REPORT INFORMATION
  Report Type: 
  Country: None (occurrence: None)
  Receive Date: 20120625
  Receipt Date: 20120614
  Transmission Date: 20120825
  Serious: Yes (Other)
  Sender: FDA-Public Use
  Company Number: DSA_58008_2012

PATIENT
  Sex: Male

DRUGS (9)
  1. PANTOPRAZOLE [Concomitant]
  2. DIAMICRON [Concomitant]
  3. MEDROL [Concomitant]
  4. WELLBUTRIN [Suspect]
     Indication: PRODUCT USED FOR UNKNOWN INDICATION
     Dosage: 150 MG QD
     Dates: start: 20120401, end: 20120505
  5. ALLOPURINOL [Concomitant]
  6. PLAVIX [Concomitant]
  7. ASPIRIN [Concomitant]
  8. EMCORETIC [Concomitant]
  9. SIMVASTATIN [Concomitant]

REACTIONS (5)
  - CONDITION AGGRAVATED [None]
  - PURPURA [None]
  - SYSTEMIC LUPUS ERYTHEMATOSUS [None]
  - RASH MACULAR [None]
  - MENTAL DISORDER [None]
